FAERS Safety Report 6719867-7 (Version None)
Quarter: 2010Q2

REPORT INFORMATION
  Report Type: 
  Country: None (occurrence: None)
  Receive Date: 20100511
  Receipt Date: 20100504
  Transmission Date: 20101027
  Serious: Yes (Hospitalization)
  Sender: FDA-Public Use
  Company Number: PHHO2009AR04259

PATIENT
  Sex: Female
  Weight: 68.7 kg

DRUGS (4)
  1. CERTICAN [Suspect]
     Indication: LIVER TRANSPLANT
     Dosage: 8 MG
     Dates: start: 20081024
  2. CERTICAN [Suspect]
     Dosage: UNK
     Dates: end: 20100504
  3. TACROLIMUS [Suspect]
     Indication: LIVER TRANSPLANT
     Dosage: 6 MG
     Route: 048
     Dates: start: 20081024, end: 20100504
  4. DELTISONA [Concomitant]

REACTIONS (7)
  - ASTHENIA [None]
  - CYSTITIS [None]
  - DIARRHOEA [None]
  - DRUG TOXICITY [None]
  - JAUNDICE [None]
  - LIVER FUNCTION TEST ABNORMAL [None]
  - PYREXIA [None]
